FAERS Safety Report 7672578-6 (Version None)
Quarter: 2011Q3

REPORT INFORMATION
  Report Type: 
  Country: None (occurrence: None)
  Receive Date: 20110804
  Receipt Date: 20110720
  Transmission Date: 20111222
  Serious: Yes (Death)
  Sender: FDA-Public Use
  Company Number: 2011BN000070

PATIENT

DRUGS (3)
  1. HEPARIN [Concomitant]
  2. DACTINOMYCIN [Suspect]
     Indication: SKIN CANCER
     Dosage: ; IV
     Route: 042
  3. MELPHALAN HYDROCHLORIDE [Suspect]
     Indication: SKIN CANCER
     Dosage: ;IV
     Route: 042

REACTIONS (4)
  - METASTASIS [None]
  - MALIGNANT SOFT TISSUE NEOPLASM [None]
  - NEOPLASM PROGRESSION [None]
  - SKIN CANCER [None]
